FAERS Safety Report 4303486-6 (Version None)
Quarter: 2004Q1

REPORT INFORMATION
  Report Type: 
  Country: None (occurrence: None)
  Receive Date: 20040223
  Receipt Date: 20040212
  Transmission Date: 20041129
  Serious: Yes (Other)
  Sender: FDA-Public Use
  Company Number: 2004009576

PATIENT
  Age: 54 Year
  Sex: Female
  Weight: 69.4003 kg

DRUGS (1)
  1. VFEND [Suspect]
     Indication: FUNGAL INFECTION
     Dosage: 800 MG (BID), ORAL
     Route: 048
     Dates: start: 20030101

REACTIONS (8)
  - ACQUIRED NIGHT BLINDNESS [None]
  - CYANOPSIA [None]
  - DRUG INEFFECTIVE [None]
  - DRUG TOXICITY [None]
  - HALO VISION [None]
  - IMPAIRED DRIVING ABILITY [None]
  - PORPHYRIA [None]
  - VISUAL DISTURBANCE [None]
